FAERS Safety Report 9209504 (Version 1)
Quarter: 2013Q1

REPORT INFORMATION
  Report Type: Spontaneous
  Country: US (occurrence: None)
  Receive Date: 20120820
  Receipt Date: 20120820
  Transmission Date: 20140127
  Serious: No
  Sender: FDA-Public Use
  Company Number: 1000031410

PATIENT
  Age: 80 Year
  Sex: Female

DRUGS (5)
  1. VIIBRYD [Suspect]
     Indication: DEPRESSION
     Route: 048
     Dates: start: 20120614, end: 20120614
  2. PLAVIX (CLOPIDOGREL BISULFATE) (CLOPIDEGREL BISULFATE) [Concomitant]
  3. ASA (ACETYLSALICYCLIC ACID ) (ACETYLSALICYCLIC ACID) [Concomitant]
  4. LASIX (FUROSEMIDE) (FUROSEMIDE) [Concomitant]
  5. DIGOXIN (DIGOXIN) (DIGOXIN) [Concomitant]

REACTIONS (2)
  - Diarrhoea [None]
  - Dizziness [None]
